FAERS Safety Report 4738403-8 (Version None)
Quarter: 2005Q3

REPORT INFORMATION
  Report Type: 
  Country: None (occurrence: None)
  Receive Date: 20050809
  Receipt Date: 20050802
  Transmission Date: 20060218
  Serious: Yes (Other)
  Sender: FDA-Public Use
  Company Number: GB-GLAXOSMITHKLINE-B0389433A

PATIENT
  Sex: Male

DRUGS (6)
  1. AVANDIA [Suspect]
  2. AMLODIPINE [Concomitant]
  3. CLOPIDOGREL BISULFATE [Concomitant]
  4. LISINOPRIL [Concomitant]
  5. METFORMIN [Concomitant]
  6. SIMVASTATIN [Concomitant]

REACTIONS (4)
  - ABDOMINAL PAIN [None]
  - PSORIASIS [None]
  - RASH [None]
  - SLEEP DISORDER [None]
